FAERS Safety Report 23733861 (Version 1)
Quarter: 2024Q2

REPORT INFORMATION
  Report Type: Report from Study
  Country: US (occurrence: US)
  Receive Date: 20240412
  Receipt Date: 20240412
  Transmission Date: 20240716
  Serious: Yes (Hospitalization, Other)
  Sender: FDA-Public Use
  Company Number: US-JAZZ PHARMACEUTICALS-2024-US-005758

PATIENT
  Sex: Female

DRUGS (1)
  1. EPIDIOLEX [Suspect]
     Active Substance: CANNABIDIOL
     Indication: Partial seizures
     Dosage: 0.8 MILLILITER, BID
     Route: 048
     Dates: start: 202311

REACTIONS (4)
  - Seizure [Recovered/Resolved]
  - Weight increased [Unknown]
  - Emergency care [Unknown]
  - Off label use [Unknown]
